FAERS Safety Report 22672382 (Version 3)
Quarter: 2023Q4

REPORT INFORMATION
  Report Type: Report from Study
  Country: JP (occurrence: JP)
  Receive Date: 20230705
  Receipt Date: 20231219
  Transmission Date: 20240110
  Serious: Yes (Hospitalization, Other)
  Sender: FDA-Public Use
  Company Number: JP-GUERBETG_JAPAN-JP-20230081

PATIENT
  Age: 73 Year
  Sex: Male

DRUGS (2)
  1. LIPIODOL [Suspect]
     Active Substance: ETHIODIZED OIL
     Indication: Therapeutic embolisation
     Dosage: NBCA WAS MIXED WITH LIPIODOL AT A RATIO OF 1:2 MIXTURE LIQUID AND 1.5 ML WAS INJECTED.
     Route: 013
  2. ENBUCRILATE [Suspect]
     Active Substance: ENBUCRILATE
     Indication: Therapeutic embolisation
     Dosage: NBCA WAS MIXED WITH LIPIODOL AT A RATIO OF 1:2 MIXTURE LIQUID AND 1.5 ML WAS INJECTED.
     Route: 013

REACTIONS (1)
  - Skin necrosis [Recovered/Resolved]
